FAERS Safety Report 15535803 (Version 1)
Quarter: 2018Q4

REPORT INFORMATION
  Report Type: Spontaneous
  Country: US (occurrence: US)
  Receive Date: 20181022
  Receipt Date: 20181022
  Transmission Date: 20190205
  Serious: No
  Sender: FDA-Public Use
  Company Number: US-PFIZER INC-2018424347

PATIENT
  Age: 74 Year
  Sex: Female

DRUGS (2)
  1. CARVEDILOL. [Suspect]
     Active Substance: CARVEDILOL
     Dosage: UNK
  2. RAMIPRIL. [Suspect]
     Active Substance: RAMIPRIL
     Dosage: UNK

REACTIONS (1)
  - Dizziness [Unknown]
